FAERS Safety Report 26071112 (Version 4)
Quarter: 2025Q4

REPORT INFORMATION
  Report Type: Spontaneous
  Country: JP (occurrence: JP)
  Receive Date: 20251120
  Receipt Date: 20251201
  Transmission Date: 20260118
  Serious: Yes (Hospitalization, Other)
  Sender: MERCK SHARP & DOHME LLC
  Company Number: JP-009507513-2350380

PATIENT
  Age: 52 Year
  Sex: Female

DRUGS (4)
  1. KEYTRUDA [Suspect]
     Active Substance: PEMBROLIZUMAB
  2. KEYTRUDA [Suspect]
     Active Substance: PEMBROLIZUMAB
     Route: 041
  3. PACLITAXEL [Concomitant]
     Active Substance: PACLITAXEL
  4. CARBOPLATIN [Concomitant]
     Active Substance: CARBOPLATIN

REACTIONS (22)
  - Bradycardia [Unknown]
  - Hepatic enzyme abnormal [Unknown]
  - Stevens-Johnson syndrome [Unknown]
  - Renal impairment [Unknown]
  - Skin exfoliation [Unknown]
  - Inflammation [Unknown]
  - Face oedema [Recovering/Resolving]
  - Genital candidiasis [Unknown]
  - Pancreatitis [Unknown]
  - Blood creatine phosphokinase increased [Recovering/Resolving]
  - Platelet count decreased [Unknown]
  - Stomatitis [Unknown]
  - Erythema multiforme [Recovering/Resolving]
  - Pyrexia [Unknown]
  - Blister [Unknown]
  - Myositis [Unknown]
  - Hepatic function abnormal [Unknown]
  - Toxic epidermal necrolysis [Unknown]
  - Infection [Unknown]
  - Amylase increased [Unknown]
  - Sialoadenitis [Unknown]
  - C-reactive protein increased [Unknown]

NARRATIVE: CASE EVENT DATE: 20251101
